FAERS Safety Report 8814702 (Version 1)
Quarter: 2012Q4

REPORT INFORMATION
  Report Type: 
  Country: US (occurrence: US)
  Receive Date: 20120928
  Receipt Date: 20120928
  Transmission Date: 20130627
  Serious: No
  Sender: FDA-Public Use
  Company Number: US-GLAXOSMITHKLINE-A0954339A

PATIENT
  Age: 10 Year
  Sex: Female
  Weight: 32.7 kg

DRUGS (8)
  1. LAMICTAL [Suspect]
     Indication: EPILEPSY
     Dosage: 75MG Single dose
     Route: 048
     Dates: start: 20111121
  2. KEPPRA [Concomitant]
  3. CONCERTA [Concomitant]
  4. NASONEX [Concomitant]
  5. ALLEGRA [Concomitant]
  6. MELATONIN [Concomitant]
  7. FISH OIL [Concomitant]
  8. VITAMIN D [Concomitant]

REACTIONS (1)
  - Incorrect dose administered [Recovered/Resolved]
